FAERS Safety Report 9773837 (Version 1)
Quarter: 2013Q4

REPORT INFORMATION
  Report Type: Report from Study
  Country: US (occurrence: US)
  Receive Date: 20131220
  Receipt Date: 20131220
  Transmission Date: 20140711
  Serious: Yes (Other)
  Sender: FDA-Public Use
  Company Number: US-ROCHE-1321847

PATIENT
  Age: 63 Year
  Sex: Female
  Weight: 66.4 kg

DRUGS (3)
  1. HERCEPTIN [Suspect]
     Indication: BREAST CANCER
     Route: 042
     Dates: start: 20130910
  2. PERJETA [Suspect]
     Indication: BREAST CANCER
     Route: 042
     Dates: start: 20130910
  3. TAXOL [Concomitant]
     Indication: BREAST CANCER
     Route: 042
     Dates: start: 20130910

REACTIONS (1)
  - Blood potassium decreased [Not Recovered/Not Resolved]
